FAERS Safety Report 8594086-0 (Version None)
Quarter: 2012Q3

REPORT INFORMATION
  Report Type: 
  Country: None (occurrence: None)
  Receive Date: 20120814
  Receipt Date: 20120730
  Transmission Date: 20120928
  Serious: Yes (Other)
  Sender: FDA-Public Use
  Company Number: DE-WATSON-2012-14170

PATIENT
  Age: 53 Year
  Sex: Male

DRUGS (3)
  1. TOFACITINIB CITRATE [Suspect]
     Indication: RHEUMATOID ARTHRITIS
     Dosage: UNK
     Route: 065
  2. PREDNISOLONE [Suspect]
     Indication: RHEUMATOID ARTHRITIS
     Dosage: UNK
     Route: 065
  3. METHOTREXATE [Suspect]
     Indication: RHEUMATOID ARTHRITIS
     Dosage: UNK
     Route: 065

REACTIONS (6)
  - OEDEMA PERIPHERAL [None]
  - GLOMERULONEPHRITIS MEMBRANOUS [None]
  - SMALL CELL LUNG CANCER STAGE UNSPECIFIED [None]
  - PARANEOPLASTIC SYNDROME [None]
  - NEPHROTIC SYNDROME [None]
  - WEIGHT INCREASED [None]
